FAERS Safety Report 7973339-0 (Version None)
Quarter: 2011Q4

REPORT INFORMATION
  Report Type: 
  Country: None (occurrence: None)
  Receive Date: 20111213
  Receipt Date: 20110603
  Transmission Date: 20120403
  Serious: Yes (Other)
  Sender: FDA-Public Use
  Company Number: US-AMGEN-USASP2011029167

PATIENT
  Age: 85 Year
  Sex: Female

DRUGS (4)
  1. ARANESP [Suspect]
     Indication: PRODUCT USED FOR UNKNOWN INDICATION
     Dosage: UNK
  2. VENOFER [Concomitant]
  3. PROCRIT [Suspect]
     Dosage: 40000 IU, QWK
  4. PROCRIT [Suspect]
     Indication: MYELODYSPLASTIC SYNDROME
     Dosage: 80000 IU, QWK
     Route: 058
     Dates: start: 20110101

REACTIONS (1)
  - DRUG INEFFECTIVE [None]
